FAERS Safety Report 6206860-6 (Version None)
Quarter: 2009Q2

REPORT INFORMATION
  Report Type: 
  Country: None (occurrence: None)
  Receive Date: 20090528
  Receipt Date: 20090204
  Transmission Date: 20091009
  Serious: No
  Sender: FDA-Public Use
  Company Number: US-AMGEN-US332004

PATIENT
  Sex: Female

DRUGS (5)
  1. NPLATE [Suspect]
     Indication: IDIOPATHIC THROMBOCYTOPENIC PURPURA
     Route: 058
     Dates: start: 20090126
  2. IMMUNE GLOBULIN (HUMAN) [Concomitant]
     Route: 065
  3. THIOLA [Concomitant]
     Route: 048
  4. POTASSIUM CITRATE [Concomitant]
     Route: 048
  5. ACETAZOLAMIDE [Concomitant]
     Route: 065

REACTIONS (3)
  - ARTHRALGIA [None]
  - INSOMNIA [None]
  - RASH [None]
